FAERS Safety Report 16156094 (Version 1)
Quarter: 2019Q2

REPORT INFORMATION
  Report Type: Spontaneous
  Country: GB (occurrence: GB)
  Receive Date: 20190404
  Receipt Date: 20190404
  Transmission Date: 20190711
  Serious: Yes (Other)
  Sender: FDA-Public Use
  Company Number: GB-ACCORD-117281

PATIENT
  Age: 24 Year
  Sex: Female
  Weight: 120.65 kg

DRUGS (1)
  1. QUETIAPINE. [Suspect]
     Active Substance: QUETIAPINE
     Indication: MANIA
     Route: 048
     Dates: start: 20131019

REACTIONS (1)
  - Urinary incontinence [Not Recovered/Not Resolved]
